FAERS Safety Report 18319199 (Version 1)
Quarter: 2020Q3

REPORT INFORMATION
  Report Type: Spontaneous
  Country: US (occurrence: US)
  Receive Date: 20200928
  Receipt Date: 20200928
  Transmission Date: 20201103
  Serious: Yes (Hospitalization)
  Sender: FDA-Public Use
  Company Number: None

PATIENT
  Sex: Male

DRUGS (1)
  1. PEMAZYRE [Suspect]
     Active Substance: PEMIGATINIB
     Indication: PANCREATIC CARCINOMA
     Route: 048
     Dates: start: 20200911

REACTIONS (5)
  - Urinary tract infection fungal [None]
  - Diarrhoea [None]
  - Blood potassium increased [None]
  - Aphasia [None]
  - Dehydration [None]
